FAERS Safety Report 5187093-1 (Version None)
Quarter: 2006Q4

REPORT INFORMATION
  Report Type: 
  Country: None (occurrence: None)
  Receive Date: 20061214
  Receipt Date: 20061110
  Transmission Date: 20070319
  Serious: Yes (Other)
  Sender: FDA-Public Use
  Company Number: DEPFP-E-20060003

PATIENT
  Age: 57 Year
  Sex: Male

DRUGS (9)
  1. NAVELBINE [Suspect]
     Indication: NON-SMALL CELL LUNG CANCER
     Dosage: 25 MG/M2 IV
     Route: 042
     Dates: start: 20060602, end: 20060626
  2. NAVELBINE [Suspect]
     Indication: NON-SMALL CELL LUNG CANCER
     Dosage: 25 MG/M2 IV
     Route: 042
     Dates: start: 20060711, end: 20060802
  3. NAVELBINE [Suspect]
     Indication: NON-SMALL CELL LUNG CANCER
     Dosage: 25 MG/M2 IV
     Route: 042
     Dates: start: 20060823, end: 20060830
  4. CISPLATIN [Suspect]
     Indication: NON-SMALL CELL LUNG CANCER
     Dosage: 50 MG/M2 1 X WK IV
     Route: 042
     Dates: start: 20060602
  5. KEVATRIL [Concomitant]
  6. FORTECORTIN [Concomitant]
  7. PANTOPRAZOLE SODIUM [Concomitant]
  8. PASPERTIN-K [Concomitant]
  9. HYDROCHLOROTHIAZIDE [Concomitant]

REACTIONS (1)
  - TENDON RUPTURE [None]
